FAERS Safety Report 5880705-6 (Version None)
Quarter: 2008Q3

REPORT INFORMATION
  Report Type: 
  Country: None (occurrence: None)
  Receive Date: 20080912
  Receipt Date: 20080605
  Transmission Date: 20090109
  Serious: No
  Sender: FDA-Public Use
  Company Number: US-ABBOTT-08P-163-0455462-00

PATIENT
  Sex: Female
  Weight: 45.4 kg

DRUGS (6)
  1. HUMIRA [Suspect]
     Indication: PSORIASIS
     Route: 058
     Dates: start: 20080501
  2. TYLOX [Concomitant]
     Indication: PROCEDURAL PAIN
     Dosage: 10/325 MG, 3 IN 1 D
     Route: 048
     Dates: start: 20080601
  3. TYLOX [Concomitant]
     Indication: INTRACRANIAL ANEURYSM
  4. TYLOX [Concomitant]
     Indication: PSORIATIC ARTHROPATHY
  5. PHENYTOIN [Concomitant]
     Indication: CONVULSION
     Route: 048
     Dates: start: 20050101
  6. PREGABALIN [Concomitant]
     Indication: CONVULSION
     Route: 048
     Dates: start: 20070101

REACTIONS (2)
  - ASTHENIA [None]
  - INFLUENZA LIKE ILLNESS [None]
